FAERS Safety Report 10969258 (Version 1)
Quarter: 2015Q1

REPORT INFORMATION
  Report Type: Spontaneous
  Country: US (occurrence: None)
  Receive Date: 20150330
  Receipt Date: 20150330
  Transmission Date: 20150721
  Serious: Yes (Death)
  Sender: FDA-Public Use
  Company Number: None

PATIENT
  Age: 58 Year
  Sex: Female

DRUGS (1)
  1. H.P. ACTHAR [Suspect]
     Active Substance: CORTICOTROPIN
     Indication: NEPHROTIC SYNDROME
     Dosage: FIRST SHIPPED TO PATIENT ON 07/08/.2014, STRENGTH: 80U/ ML, DOSE FORM: INJECTABLE, FREQUENCY: TWICE WEEKLY, ROUTE: SUBCUTANEOUS 057
     Route: 058
     Dates: start: 20140708

REACTIONS (1)
  - Death [None]

NARRATIVE: CASE EVENT DATE: 20150326
